FAERS Safety Report 19502012 (Version 1)
Quarter: 2021Q3

REPORT INFORMATION
  Report Type: Spontaneous
  Country: US (occurrence: US)
  Receive Date: 20210707
  Receipt Date: 20210707
  Transmission Date: 20211014
  Serious: No
  Sender: FDA-Public Use
  Company Number: US-JUBILANT CADISTA PHARMACEUTICALS-2021JUB00053

PATIENT
  Age: 40 Year
  Sex: Female

DRUGS (10)
  1. MECLIZINE HYDROCHLORIDE. [Suspect]
     Active Substance: MECLIZINE HYDROCHLORIDE
     Indication: HEADACHE
  2. MAGNESIUM [Concomitant]
     Active Substance: MAGNESIUM
  3. VITAMIN C/ZINC [Concomitant]
     Active Substance: ASCORBIC ACID\ZINC
  4. NAPROXEN. [Suspect]
     Active Substance: NAPROXEN
     Indication: DIZZINESS
  5. REGEN [Suspect]
     Active Substance: MINOXIDIL
     Indication: DIZZINESS
  6. NAPROXEN. [Suspect]
     Active Substance: NAPROXEN
     Indication: HEADACHE
  7. COLESTIPOL [Concomitant]
     Active Substance: COLESTIPOL
  8. MECLIZINE HYDROCHLORIDE. [Suspect]
     Active Substance: MECLIZINE HYDROCHLORIDE
     Indication: DIZZINESS
  9. REGEN [Suspect]
     Active Substance: MINOXIDIL
     Indication: HEADACHE
  10. VITAMIN D [Concomitant]
     Active Substance: VITAMIN D NOS

REACTIONS (1)
  - Drug ineffective [Unknown]

NARRATIVE: CASE EVENT DATE: 20210125
